FAERS Safety Report 9628810 (Version 2)
Quarter: 2013Q4

REPORT INFORMATION
  Report Type: Report from Study
  Country: US (occurrence: US)
  Receive Date: 20131017
  Receipt Date: 20131017
  Transmission Date: 20140711
  Serious: Yes (Hospitalization)
  Sender: FDA-Public Use
  Company Number: US-ASTRAZENECA-2013SE15555

PATIENT
  Age: 74 Year
  Sex: Female
  Weight: 63 kg

DRUGS (10)
  1. NEXIUM [Suspect]
     Indication: GASTROOESOPHAGEAL REFLUX DISEASE
     Route: 048
  2. NEXIUM [Suspect]
     Indication: DYSPHAGIA
     Route: 048
  3. NEXIUM [Suspect]
     Indication: GASTROOESOPHAGEAL REFLUX DISEASE
     Route: 048
     Dates: start: 201303, end: 201310
  4. NEXIUM [Suspect]
     Indication: DYSPHAGIA
     Route: 048
     Dates: start: 201303, end: 201310
  5. OMEPRAZOLE [Suspect]
     Indication: GASTROOESOPHAGEAL REFLUX DISEASE
     Route: 048
     Dates: start: 201303
  6. AVONEX [Concomitant]
     Indication: MULTIPLE SCLEROSIS
     Dates: start: 1996
  7. PREMARIN [Concomitant]
     Indication: HOT FLUSH
     Route: 048
     Dates: start: 1996
  8. PREDNISONE [Concomitant]
     Route: 045
  9. MELOXICAM [Concomitant]
     Indication: MUSCLE RELAXANT THERAPY
     Route: 048
     Dates: start: 2013
  10. AMBIEN [Concomitant]
     Indication: SLEEP DISORDER
     Route: 048

REACTIONS (3)
  - Adverse event [Unknown]
  - Drug dose omission [Unknown]
  - Drug ineffective [Unknown]
